FAERS Safety Report 5968886-7 (Version None)
Quarter: 2008Q4

REPORT INFORMATION
  Report Type: 
  Country: None (occurrence: None)
  Receive Date: 20081125
  Receipt Date: 20081125
  Transmission Date: 20090506
  Serious: Yes (Life-Threatening)
  Sender: FDA-Public Use
  Company Number: None

PATIENT
  Age: 45 Year
  Sex: Female
  Weight: 108.8633 kg

DRUGS (2)
  1. AVAPRO [Suspect]
     Indication: BLOOD PRESSURE
     Dates: start: 20081028, end: 20081118
  2. ZETIA [Suspect]
     Indication: BLOOD CHOLESTEROL
     Dates: start: 20081028, end: 20081118

REACTIONS (4)
  - DEPRESSION [None]
  - LETHARGY [None]
  - LIP SWELLING [None]
  - SUICIDAL IDEATION [None]
